FAERS Safety Report 6866725-3 (Version None)
Quarter: 2010Q3

REPORT INFORMATION
  Report Type: 
  Country: None (occurrence: None)
  Receive Date: 20100722
  Receipt Date: 20100623
  Transmission Date: 20110219
  Serious: Yes (Other)
  Sender: FDA-Public Use
  Company Number: PHHY2010IE37889

PATIENT
  Sex: Male
  Weight: 36 kg

DRUGS (2)
  1. RITALIN [Suspect]
     Indication: ATTENTION DEFICIT/HYPERACTIVITY DISORDER
     Dosage: 10 MG IN THE MORNING AND 5 MG  IN THE EVENING
     Route: 048
     Dates: start: 20040901
  2. RITALIN [Suspect]
     Dosage: 10 MG, BID
     Route: 048
     Dates: start: 20080401

REACTIONS (2)
  - BLOOD BILIRUBIN INCREASED [None]
  - GILBERT'S SYNDROME [None]
